FAERS Safety Report 14177992 (Version 2)
Quarter: 2017Q4

REPORT INFORMATION
  Report Type: Spontaneous
  Country: US (occurrence: US)
  Receive Date: 20171110
  Receipt Date: 20171114
  Transmission Date: 20180321
  Serious: Yes (Death)
  Sender: FDA-Public Use
  Company Number: US-JNJFOC-20171109676

PATIENT
  Sex: Female

DRUGS (1)
  1. DURAGESIC [Suspect]
     Active Substance: FENTANYL
     Indication: BACK PAIN
     Route: 062

REACTIONS (3)
  - Cerebrovascular accident [Fatal]
  - Gallbladder perforation [Fatal]
  - Product use complaint [Unknown]
